FAERS Safety Report 4819027-0 (Version None)
Quarter: 2005Q4

REPORT INFORMATION
  Report Type: 
  Country: None (occurrence: None)
  Receive Date: 20051101
  Receipt Date: 20051024
  Transmission Date: 20060501
  Serious: Yes (Other)
  Sender: FDA-Public Use
  Company Number: 2005145887

PATIENT
  Age: 52 Year
  Sex: Female
  Weight: 120 kg

DRUGS (4)
  1. ACCUZIDE (HYDROCHLOROTHIAZIDE, QUINAPRIL) [Suspect]
     Indication: HYPERTENSION
     Dosage: 12,5/20MG (1 IN 1 D), ORAL
     Route: 048
     Dates: start: 20050903, end: 20050920
  2. LERCANIDIPINE [Concomitant]
  3. METFORMIN HCL [Concomitant]
  4. INSULIN [Concomitant]

REACTIONS (3)
  - ARRHYTHMIA [None]
  - DYSPHONIA [None]
  - HYPOAESTHESIA [None]
